FAERS Safety Report 6168544-2 (Version None)
Quarter: 2009Q2

REPORT INFORMATION
  Report Type: 
  Country: None (occurrence: None)
  Receive Date: 20090427
  Receipt Date: 20090425
  Transmission Date: 20091009
  Serious: Yes (Hospitalization)
  Sender: FDA-Public Use
  Company Number: Z0000831B

PATIENT
  Sex: Male
  Weight: 68.2 kg

DRUGS (2)
  1. LAPATINIB [Suspect]
     Indication: GASTRIC CANCER
     Dosage: 1500MG PER DAY
     Route: 048
     Dates: start: 20090318
  2. PACLITAXEL [Suspect]
     Indication: GASTRIC CANCER
     Dosage: 80MGM2 CYCLIC
     Route: 042
     Dates: start: 20090318

REACTIONS (1)
  - NEUTROPENIA [None]
